FAERS Safety Report 7181768-0 (Version None)
Quarter: 2010Q4

REPORT INFORMATION
  Report Type: 
  Country: None (occurrence: None)
  Receive Date: 20101221
  Receipt Date: 20100429
  Transmission Date: 20110411
  Serious: No
  Sender: FDA-Public Use
  Company Number: US-AMGEN-KDL409626

PATIENT

DRUGS (3)
  1. ENBREL [Suspect]
     Indication: RHEUMATOID ARTHRITIS
     Dosage: UNK UNK, UNK
     Dates: start: 20071107
  2. ALENDRONATE SODIUM [Concomitant]
  3. THYROID [Concomitant]

REACTIONS (11)
  - ABDOMINAL PAIN [None]
  - CATARACT [None]
  - HEADACHE [None]
  - JOINT DESTRUCTION [None]
  - JOINT SWELLING [None]
  - MALAISE [None]
  - MOBILITY DECREASED [None]
  - NERVOUSNESS [None]
  - OEDEMA PERIPHERAL [None]
  - PAIN [None]
  - RHEUMATOID ARTHRITIS [None]
